FAERS Safety Report 5847498-X (Version None)
Quarter: 2008Q3

REPORT INFORMATION
  Report Type: 
  Country: None (occurrence: None)
  Receive Date: 20080814
  Receipt Date: 20080805
  Transmission Date: 20090109
  Serious: Yes (Other)
  Sender: FDA-Public Use
  Company Number: TPA2008A01250

PATIENT
  Age: 50 Year
  Sex: Female

DRUGS (2)
  1. ACTOPLUS MET [Suspect]
     Indication: DIABETES MELLITUS
     Dosage: UNK., UNKNOWN, PER ORAL
     Route: 048
  2. PREDNISONE [Concomitant]

REACTIONS (2)
  - MENISCUS LESION [None]
  - TIBIA FRACTURE [None]
